FAERS Safety Report 23999213 (Version 1)
Quarter: 2024Q2

REPORT INFORMATION
  Report Type: Spontaneous
  Country: SA (occurrence: SA)
  Receive Date: 20240621
  Receipt Date: 20240621
  Transmission Date: 20240715
  Serious: Yes (Other)
  Sender: FDA-Public Use
  Company Number: SA-SUN PHARMACEUTICAL INDUSTRIES LTD-2024R1-451764

PATIENT
  Age: 34 Year
  Sex: Female

DRUGS (2)
  1. CINACALCET [Suspect]
     Active Substance: CINACALCET
     Indication: Hyperparathyroidism
     Dosage: 60 MILLIGRAM/DAY
     Route: 065
     Dates: start: 201808
  2. CINACALCET [Suspect]
     Active Substance: CINACALCET
     Dosage: 180 MILLIGRAM/DAY
     Route: 065
     Dates: start: 201808

REACTIONS (1)
  - Therapy partial responder [Unknown]
